FAERS Safety Report 4450807-X (Version None)
Quarter: 2004Q3

REPORT INFORMATION
  Report Type: 
  Country: None (occurrence: None)
  Receive Date: 20040916
  Receipt Date: 20001222
  Transmission Date: 20050211
  Serious: Yes (Other)
  Sender: FDA-Public Use
  Company Number: US-BRISTOL-MYERS SQUIBB COMPANY-10660710

PATIENT
  Sex: Female

DRUGS (6)
  1. STADOL [Suspect]
     Indication: MIGRAINE
     Route: 045
     Dates: start: 19920101
  2. ROXICET [Concomitant]
  3. PROMETHAZINE [Concomitant]
  4. AMITRIPTYLINE HCL [Concomitant]
  5. TYLOX [Concomitant]
  6. CARISOPRODOL [Concomitant]

REACTIONS (1)
  - DEPENDENCE [None]
